FAERS Safety Report 16783467 (Version 1)
Quarter: 2019Q3

REPORT INFORMATION
  Report Type: Spontaneous
  Country: GB (occurrence: GB)
  Receive Date: 20190907
  Receipt Date: 20190907
  Transmission Date: 20191005
  Serious: Yes (Other)
  Sender: FDA-Public Use
  Company Number: GB-TEVA-2019-GB-1102566

PATIENT
  Age: 64 Year
  Sex: Female
  Weight: 81 kg

DRUGS (3)
  1. AMITRIPTYLINE [Concomitant]
     Active Substance: AMITRIPTYLINE
     Dosage: WITHDRAWN AFTER INCIDENT
  2. LOSARTAN. [Concomitant]
     Active Substance: LOSARTAN
  3. NITROFURANTOIN. [Suspect]
     Active Substance: NITROFURANTOIN
     Indication: URINARY TRACT INFECTION
     Dosage: CANNOT RECALL BUT GP WOULD HAVE RECORD. TOOK 2 TABLETS AT 10 PM THEN WOULD HAVE TAKEN 1 X 4 PER DAY.
     Route: 048
     Dates: start: 20181205, end: 20181206

REACTIONS (4)
  - Loss of consciousness [Recovered/Resolved]
  - Malaise [Recovered/Resolved]
  - Dysphonia [Unknown]
  - Discoloured vomit [Recovered/Resolved]

NARRATIVE: CASE EVENT DATE: 20181205
